FAERS Safety Report 9149505 (Version 1)
Quarter: 2013Q1

REPORT INFORMATION
  Report Type: Spontaneous
  Country: IN (occurrence: None)
  Receive Date: 20130131
  Receipt Date: 20130131
  Transmission Date: 20140127
  Serious: Yes (Hospitalization)
  Sender: FDA-Public Use
  Company Number: 2013SUN00046

PATIENT
  Age: 24 Year
  Sex: Male

DRUGS (9)
  1. ONDANSETRON [Suspect]
     Indication: GASTROENTERITIS
     Route: 048
  2. OFLOXACIN (OFLOXACIN) [Concomitant]
  3. ORNIDAZOLE (ORNIDAZOLE) [Concomitant]
  4. MULTIVITAMINS [Concomitant]
  5. RIFAMPICIN (RIFAMPICIN) [Concomitant]
  6. ISONIAZID (ISONIAZID) [Concomitant]
  7. ETHAMBUTOL (ETHAMBUTOL) [Concomitant]
  8. PYRAZINAMIDE (PYRAZINAMIDE) [Concomitant]
  9. COTRIMOXAZOLE (COTRIMOXAZOLE) [Concomitant]

REACTIONS (3)
  - Toxic epidermal necrolysis [None]
  - Scar [None]
  - Corneal opacity [None]
